FAERS Safety Report 9701298 (Version 1)
Quarter: 2013Q4

REPORT INFORMATION
  Report Type: Spontaneous
  Country: US (occurrence: US)
  Receive Date: 20131121
  Receipt Date: 20131121
  Transmission Date: 20140711
  Serious: No
  Sender: FDA-Public Use
  Company Number: US-GILEAD-2008-0016388

PATIENT
  Age: 78 Year
  Sex: Female
  Weight: 58.97 kg

DRUGS (9)
  1. VENTAVIS [Concomitant]
     Route: 048
  2. LASIX [Concomitant]
     Route: 048
  3. FELODIPINE [Concomitant]
     Route: 048
  4. CRESTOR [Concomitant]
     Route: 048
  5. LEVOTHYROXIN [Concomitant]
     Route: 048
  6. ASA [Concomitant]
     Route: 048
  7. TYLENOL [Concomitant]
     Route: 048
  8. NEXIUM [Concomitant]
     Route: 048
  9. LETAIRIS [Suspect]
     Indication: PULMONARY HYPERTENSION
     Route: 048
     Dates: start: 20070701

REACTIONS (1)
  - Dizziness [None]
